FAERS Safety Report 7850477-4 (Version None)
Quarter: 2011Q4

REPORT INFORMATION
  Report Type: 
  Country: None (occurrence: None)
  Receive Date: 20111026
  Receipt Date: 20111026
  Transmission Date: 20120403
  Serious: Yes (Other)
  Sender: FDA-Public Use
  Company Number: None

PATIENT
  Sex: Female
  Weight: 68.038 kg

DRUGS (1)
  1. ULTRAVIST 150 [Suspect]
     Indication: SCAN WITH CONTRAST
     Dosage: 100 ML
     Route: 040
     Dates: start: 20111019, end: 20111019

REACTIONS (3)
  - CONTRAST MEDIA REACTION [None]
  - URTICARIA [None]
  - RASH [None]
